FAERS Safety Report 4982680-5 (Version None)
Quarter: 2006Q2

REPORT INFORMATION
  Report Type: 
  Country: None (occurrence: None)
  Receive Date: 20060425
  Receipt Date: 20050729
  Transmission Date: 20061013
  Serious: Yes (Hospitalization, Disabling)
  Sender: FDA-Public Use
  Company Number: US-MERCK-0508USA00448

PATIENT
  Age: 71 Year
  Sex: Male
  Weight: 102 kg

DRUGS (7)
  1. VIOXX [Suspect]
     Indication: SPORTS INJURY
     Route: 048
     Dates: start: 20000101, end: 20030801
  2. LIPITOR [Concomitant]
     Route: 065
  3. ZETIA [Concomitant]
     Route: 048
  4. ATENOLOL [Concomitant]
     Route: 065
  5. ASPIRIN [Concomitant]
     Route: 048
  6. VITAMIN E [Concomitant]
     Route: 065
  7. FOLIC ACID [Concomitant]
     Route: 065

REACTIONS (32)
  - ACUTE MYOCARDIAL INFARCTION [None]
  - ANAEMIA OF CHRONIC DISEASE [None]
  - ATELECTASIS [None]
  - ATRIAL FIBRILLATION [None]
  - BENIGN PROSTATIC HYPERPLASIA [None]
  - BLOOD GLUCOSE INCREASED [None]
  - CEREBRAL INFARCTION [None]
  - CONGESTIVE CARDIOMYOPATHY [None]
  - DECUBITUS ULCER [None]
  - DEEP VEIN THROMBOSIS [None]
  - DEPRESSION [None]
  - DIABETES MELLITUS [None]
  - DRUG HYPERSENSITIVITY [None]
  - DUODENAL ULCER [None]
  - GASTRITIS [None]
  - GASTROINTESTINAL HAEMORRHAGE [None]
  - GASTROOESOPHAGEAL REFLUX DISEASE [None]
  - GRAND MAL CONVULSION [None]
  - HAEMATURIA [None]
  - HUMERUS FRACTURE [None]
  - ISCHAEMIC STROKE [None]
  - JOINT DISLOCATION [None]
  - JOINT SPRAIN [None]
  - MITRAL VALVE INCOMPETENCE [None]
  - MYOFASCIAL PAIN SYNDROME [None]
  - NEUROGENIC BLADDER [None]
  - NEUROGENIC BOWEL [None]
  - OSTEOPOROSIS [None]
  - RENAL INJURY [None]
  - RHINITIS ALLERGIC [None]
  - SKIN LESION [None]
  - VENTRICULAR HYPERTROPHY [None]
